FAERS Safety Report 9680959 (Version 2)
Quarter: 2013Q4

REPORT INFORMATION
  Report Type: Report from Study
  Country: BR (occurrence: BR)
  Receive Date: 20131111
  Receipt Date: 20131209
  Transmission Date: 20140711
  Serious: Yes (Death, Hospitalization)
  Sender: FDA-Public Use
  Company Number: BR-BAYER-2013-133331

PATIENT
  Age: 51 Year
  Sex: Male

DRUGS (8)
  1. NEXAVAR [Suspect]
     Indication: HEPATIC CANCER
     Dosage: 2 DF, BID
     Route: 048
     Dates: start: 20130715
  2. OMEPRAZOLE [Concomitant]
  3. SPIRONOLACTONE [Concomitant]
  4. FUROSEMIDE [Concomitant]
  5. HEPAMERZ [ORNITHINE ASPARTATE] [Concomitant]
  6. LACTULOSE [Concomitant]
  7. TRAMAL [Concomitant]
     Indication: PAIN
     Dosage: UNK
     Dates: start: 201308
  8. CEPHALEXIN [Concomitant]
     Indication: PAIN
     Dosage: UNK
     Dates: start: 201308

REACTIONS (3)
  - Multi-organ failure [Fatal]
  - Anuria [Not Recovered/Not Resolved]
  - Constipation [Not Recovered/Not Resolved]
